FAERS Safety Report 22930891 (Version 3)
Quarter: 2024Q2

REPORT INFORMATION
  Report Type: Spontaneous
  Country: US (occurrence: US)
  Receive Date: 20230911
  Receipt Date: 20240617
  Transmission Date: 20240716
  Serious: Yes (Hospitalization)
  Sender: FDA-Public Use
  Company Number: US-ABBVIE-5400491

PATIENT
  Age: 60 Year
  Sex: Female
  Weight: 54 kg

DRUGS (5)
  1. BOTOX [Suspect]
     Active Substance: ONABOTULINUMTOXINA
     Indication: Migraine
     Dosage: TIME INTERVAL: AS NECESSARY: 30 UNITS
     Route: 030
     Dates: start: 20230323, end: 20230323
  2. BOTOX [Suspect]
     Active Substance: ONABOTULINUMTOXINA
     Indication: Migraine
     Dosage: TIME INTERVAL: AS NECESSARY: 30 UNITS
     Route: 030
     Dates: start: 20230530, end: 20230530
  3. GABAPENTIN [Suspect]
     Active Substance: GABAPENTIN
     Indication: Product used for unknown indication
     Route: 065
  4. LORAZEPAM [Concomitant]
     Active Substance: LORAZEPAM
     Indication: Sleep disorder
  5. BUSPAR [Concomitant]
     Active Substance: BUSPIRONE HYDROCHLORIDE
     Indication: Anxiety
     Dosage: 10 MG

REACTIONS (24)
  - Decreased appetite [Not Recovered/Not Resolved]
  - Adverse event [Not Recovered/Not Resolved]
  - Weight decreased [Not Recovered/Not Resolved]
  - Tinnitus [Not Recovered/Not Resolved]
  - Dysphagia [Not Recovered/Not Resolved]
  - Dysphonia [Not Recovered/Not Resolved]
  - Neuralgia [Not Recovered/Not Resolved]
  - Migraine [Not Recovered/Not Resolved]
  - Product administration interrupted [Not Recovered/Not Resolved]
  - Facial spasm [Not Recovered/Not Resolved]
  - Feeling hot [Not Recovered/Not Resolved]
  - Facial nerve disorder [Not Recovered/Not Resolved]
  - Unevaluable event [Not Recovered/Not Resolved]
  - Dry eye [Not Recovered/Not Resolved]
  - Headache [Recovered/Resolved]
  - Muscle tightness [Not Recovered/Not Resolved]
  - Asthenia [Not Recovered/Not Resolved]
  - Headache [Not Recovered/Not Resolved]
  - Pain [Not Recovered/Not Resolved]
  - Dysuria [Not Recovered/Not Resolved]
  - Musculoskeletal discomfort [Not Recovered/Not Resolved]
  - Insomnia [Not Recovered/Not Resolved]
  - Pyrexia [Recovered/Resolved]
  - Abdominal distension [Not Recovered/Not Resolved]

NARRATIVE: CASE EVENT DATE: 20230301
